FAERS Safety Report 21974660 (Version 1)
Quarter: 2023Q1

REPORT INFORMATION
  Report Type: Spontaneous
  Country: US (occurrence: None)
  Receive Date: 20230208
  Receipt Date: 20230208
  Transmission Date: 20230417
  Serious: Yes (Other)
  Sender: FDA-Public Use
  Company Number: None

PATIENT
  Age: 59 Year
  Sex: Female
  Weight: 87.3 kg

DRUGS (1)
  1. JARDIANCE [Suspect]
     Active Substance: EMPAGLIFLOZIN
     Indication: Diabetes mellitus
     Dosage: OTHER QUANTITY : 30 TABLET(S);?
     Route: 048
     Dates: start: 20230204, end: 20230207

REACTIONS (20)
  - Mood swings [None]
  - Crying [None]
  - Anger [None]
  - Nausea [None]
  - Headache [None]
  - Eye pain [None]
  - Discomfort [None]
  - Abdominal discomfort [None]
  - Discomfort [None]
  - Hot flush [None]
  - Cold sweat [None]
  - Skin disorder [None]
  - Body temperature increased [None]
  - Poor quality sleep [None]
  - Blood pressure increased [None]
  - Heart rate increased [None]
  - Anxiety [None]
  - Hyperhidrosis [None]
  - Micturition urgency [None]
  - Pollakiuria [None]
